FAERS Safety Report 15189074 (Version 1)
Quarter: 2018Q3

REPORT INFORMATION
  Report Type: Spontaneous
  Country: US (occurrence: US)
  Receive Date: 20180724
  Receipt Date: 20180724
  Transmission Date: 20181010
  Serious: No
  Sender: FDA-Public Use
  Company Number: US-GALDERMA-US18021123

PATIENT
  Age: 71 Year
  Sex: Female

DRUGS (3)
  1. PROACTIV MD DEEP CLEANSING FACE WASH [Concomitant]
     Active Substance: COSMETICS
     Indication: SKIN WRINKLING
     Route: 061
     Dates: start: 20180215, end: 20180220
  2. MULTIVITAMINS [Concomitant]
     Active Substance: VITAMINS
     Indication: PRODUCT USED FOR UNKNOWN INDICATION
  3. PROACTIV MD ADAPALENE ACNE TREATMENT [Suspect]
     Active Substance: ADAPALENE
     Indication: SKIN WRINKLING
     Dosage: 0.1%
     Route: 061
     Dates: start: 20180215, end: 20180220

REACTIONS (7)
  - Eye pain [Recovered/Resolved]
  - Eye pruritus [Recovered/Resolved]
  - Product use in unapproved indication [Recovered/Resolved]
  - Inappropriate schedule of drug administration [Recovered/Resolved]
  - Eye irritation [Recovered/Resolved]
  - Eye burns [Recovered/Resolved]
  - Lacrimation increased [Recovered/Resolved]

NARRATIVE: CASE EVENT DATE: 20180215
